FAERS Safety Report 6727836-6 (Version None)
Quarter: 2010Q2

REPORT INFORMATION
  Report Type: 
  Country: None (occurrence: None)
  Receive Date: 20100514
  Receipt Date: 20100514
  Transmission Date: 20101027
  Serious: No
  Sender: FDA-Public Use
  Company Number: None

PATIENT
  Age: 44 Year
  Sex: Female
  Weight: 58.9676 kg

DRUGS (1)
  1. BOTOX COSMETIC [Suspect]
     Indication: SKIN WRINKLING
     Dosage: 1
     Dates: start: 20100505, end: 20100505

REACTIONS (13)
  - DIPLOPIA [None]
  - DISCOMFORT [None]
  - DRY EYE [None]
  - DRY MOUTH [None]
  - EYE DISORDER [None]
  - EYELID DISORDER [None]
  - EYELID OEDEMA [None]
  - FATIGUE [None]
  - HEADACHE [None]
  - INJECTION SITE PAIN [None]
  - NECK PAIN [None]
  - VISION BLURRED [None]
  - VISUAL ACUITY REDUCED [None]
